FAERS Safety Report 16499770 (Version 2)
Quarter: 2019Q3

REPORT INFORMATION
  Report Type: Spontaneous
  Country: SK (occurrence: SK)
  Receive Date: 20190701
  Receipt Date: 20190826
  Transmission Date: 20191004
  Serious: Yes (Hospitalization, Other)
  Sender: FDA-Public Use
  Company Number: SK-ACCORD-135126

PATIENT
  Age: 53 Year
  Sex: Female

DRUGS (26)
  1. TRANDOLAPRIL. [Concomitant]
     Active Substance: TRANDOLAPRIL
  2. TRIMETAZIDINE [Concomitant]
     Active Substance: TRIMETAZIDINE
  3. METOPROLOL. [Concomitant]
     Active Substance: METOPROLOL
  4. IVABRADINE/IVABRADINE HYDROCHLORIDE [Concomitant]
  5. RIVAROXABAN [Concomitant]
     Active Substance: RIVAROXABAN
  6. EPLERENONE. [Concomitant]
     Active Substance: EPLERENONE
  7. MAGNESIUM [Concomitant]
     Active Substance: MAGNESIUM
  8. CANDESARTAN. [Concomitant]
     Active Substance: CANDESARTAN
  9. LEVOSIMENDAN [Concomitant]
     Active Substance: LEVOSIMENDAN
  10. DOXORUBICIN [Suspect]
     Active Substance: DOXORUBICIN
     Indication: BREAST CANCER
     Dosage: REPEATED CYCLES?240 MG / M2, WITH DOSES UP TO 300 MG / M2
  11. LEVOCARNITINE. [Concomitant]
     Active Substance: LEVOCARNITINE
  12. SPIRONOLACTONE. [Concomitant]
     Active Substance: SPIRONOLACTONE
  13. METAMIZOLE SODIUM [Concomitant]
     Active Substance: METAMIZOLE SODIUM
  14. UBIDECARENONE [Concomitant]
     Active Substance: UBIDECARENONE
  15. NOREPINEPHRINE. [Concomitant]
     Active Substance: NOREPINEPHRINE
  16. DOCETAXEL. [Suspect]
     Active Substance: DOCETAXEL
     Indication: BREAST CANCER
     Dosage: REPEATED CYCLES
  17. LETROZOLE. [Suspect]
     Active Substance: LETROZOLE
     Indication: BREAST CANCER
  18. TRASTUZUMAB. [Suspect]
     Active Substance: TRASTUZUMAB
     Indication: BREAST CANCER
     Dosage: REPEATED CYCLES
  19. PARACETAMOL [Concomitant]
     Active Substance: ACETAMINOPHEN
  20. NEOTONE [Concomitant]
  21. MILURIT [Concomitant]
     Active Substance: ALLOPURINOL
  22. FUROSEMIDE. [Suspect]
     Active Substance: FUROSEMIDE
     Indication: DIURETIC THERAPY
  23. OXYCODONE/NALOXONE [Concomitant]
  24. SACUBITRIL/VALSARTAN [Concomitant]
  25. CYCLOPHOSPHAMIDE/CYCLOPHOSPHAMIDE MONOHYDRATE [Suspect]
     Active Substance: CYCLOPHOSPHAMIDE
     Indication: BREAST CANCER
     Dosage: REPEATED CYCLES
  26. CARVEDILOL/CARVEDILOL HYDROCHLODRIDE [Concomitant]

REACTIONS (4)
  - Cardiac failure chronic [Unknown]
  - Cough [Unknown]
  - Fatigue [Unknown]
  - Congestive cardiomyopathy [Recovering/Resolving]

NARRATIVE: CASE EVENT DATE: 201601
